FAERS Safety Report 13680168 (Version 4)
Quarter: 2017Q3

REPORT INFORMATION
  Report Type: Report from Study
  Country: US (occurrence: US)
  Receive Date: 20170622
  Receipt Date: 20170823
  Transmission Date: 20171127
  Serious: Yes (Hospitalization)
  Sender: FDA-Public Use
  Company Number: US-ACTELION-A-US2017-155095

PATIENT
  Age: 9 Year
  Sex: Male
  Weight: 18.14 kg

DRUGS (7)
  1. TRACLEER [Suspect]
     Active Substance: BOSENTAN
     Dosage: 31.25 MG, QD
     Route: 048
     Dates: start: 20170507
  2. TRACLEER [Suspect]
     Active Substance: BOSENTAN
     Indication: PULMONARY ARTERIAL HYPERTENSION
     Dosage: 31.25 MG, BID
     Route: 048
     Dates: start: 20170605
  3. REMODULIN [Suspect]
     Active Substance: TREPROSTINIL
     Indication: PRODUCT USED FOR UNKNOWN INDICATION
     Dosage: 24 NG/KG, PER MIN
     Route: 042
     Dates: start: 20170508
  4. SILDENAFIL CITRATE. [Concomitant]
     Active Substance: SILDENAFIL CITRATE
     Dosage: 15 MG, TID
     Route: 048
     Dates: start: 20170504
  5. TRACLEER [Suspect]
     Active Substance: BOSENTAN
     Dosage: 62.5 MG, BID
     Route: 048
  6. DIGOXIN. [Concomitant]
     Active Substance: DIGOXIN
     Dosage: 50 MCG, BID
     Route: 048
     Dates: start: 20170504
  7. LETAIRIS [Concomitant]
     Active Substance: AMBRISENTAN

REACTIONS (14)
  - Patent ductus arteriosus repair [Recovering/Resolving]
  - Catheter site inflammation [Unknown]
  - Catheter site erythema [Recovering/Resolving]
  - Catheter management [Recovering/Resolving]
  - Headache [Unknown]
  - Catheter site discharge [Recovering/Resolving]
  - Pyrexia [Unknown]
  - Catheter site pruritus [Unknown]
  - Treatment noncompliance [Recovering/Resolving]
  - Device related infection [Unknown]
  - Catheter site infection [Recovering/Resolving]
  - Blood culture negative [Recovering/Resolving]
  - Application site hypersensitivity [Recovering/Resolving]
  - Catheter site vesicles [Unknown]

NARRATIVE: CASE EVENT DATE: 20170605
